FAERS Safety Report 8097660-3 (Version None)
Quarter: 2012Q1

REPORT INFORMATION
  Report Type: 
  Country: None (occurrence: None)
  Receive Date: 20120128
  Receipt Date: 20110712
  Transmission Date: 20120608
  Serious: Yes (Hospitalization, Other)
  Sender: FDA-Public Use
  Company Number: US-ABBOTT-11P-163-0838750-00

PATIENT
  Sex: Male
  Weight: 83.99 kg

DRUGS (5)
  1. METHOTREXATE [Concomitant]
     Indication: PSORIASIS
     Dosage: LIGHT DOSE
  2. HUMIRA [Suspect]
     Indication: RHEUMATOID ARTHRITIS
     Dates: end: 20110501
  3. HUMIRA [Suspect]
     Indication: PSORIASIS
  4. HUMIRA [Suspect]
     Indication: ANKYLOSING SPONDYLITIS
     Dates: start: 20110626
  5. UNNAMED DIABETES MEDICATION [Concomitant]
     Indication: TYPE 2 DIABETES MELLITUS
     Route: 048

REACTIONS (4)
  - PAIN IN JAW [None]
  - TOOTH ABSCESS [None]
  - PROSTATE CANCER [None]
  - ARTHRITIS [None]
